FAERS Safety Report 10241847 (Version 2)
Quarter: 2014Q2

REPORT INFORMATION
  Report Type: Report from Study
  Country: IT (occurrence: IT)
  Receive Date: 20140617
  Receipt Date: 20140625
  Transmission Date: 20141212
  Serious: Yes (Hospitalization)
  Sender: FDA-Public Use
  Company Number: IT-ASTRAZENECA-2014SE44197

PATIENT
  Age: 22828 Day
  Sex: Male

DRUGS (11)
  1. AZD6140 [Suspect]
     Indication: CORONARY ARTERY DISEASE
     Route: 048
     Dates: start: 20120920, end: 20121018
  2. AZD6140 [Suspect]
     Indication: CORONARY ARTERY DISEASE
     Route: 048
     Dates: start: 20121027, end: 20140516
  3. AMLODIPIN [Concomitant]
     Indication: HYPERTENSION
     Route: 048
  4. METOPROLOL [Concomitant]
     Indication: ACUTE CORONARY SYNDROME
     Route: 048
  5. KANRENOL [Concomitant]
     Indication: HYPERTENSION
     Route: 048
     Dates: start: 20140320
  6. ALFUZOSIN [Concomitant]
     Indication: BENIGN PROSTATIC HYPERPLASIA
     Route: 048
  7. ATORVASTATIN [Concomitant]
     Indication: DYSLIPIDAEMIA
     Route: 048
  8. LASIX [Concomitant]
     Indication: HYPERTENSION
     Route: 048
     Dates: start: 20130508
  9. RAMIPRIL [Concomitant]
     Indication: ACUTE CORONARY SYNDROME
     Route: 048
  10. LANSOPRAZONE [Concomitant]
     Indication: GASTRITIS PROPHYLAXIS
     Route: 048
  11. ASA [Concomitant]
     Route: 048

REACTIONS (1)
  - Post procedural haematoma [Recovered/Resolved]
